FAERS Safety Report 5911473-7 (Version None)
Quarter: 2008Q4

REPORT INFORMATION
  Report Type: 
  Country: None (occurrence: None)
  Receive Date: 20081007
  Receipt Date: 20080925
  Transmission Date: 20090506
  Serious: Yes (Other)
  Sender: FDA-Public Use
  Company Number: GB-PFIZER INC-2008082035

PATIENT
  Age: 38 Year
  Sex: Female

DRUGS (2)
  1. CHANTIX [Suspect]
     Indication: SMOKING CESSATION THERAPY
     Route: 048
  2. DEPO-PROVERA [Concomitant]

REACTIONS (3)
  - DEPRESSED MOOD [None]
  - INCORRECT DRUG ADMINISTRATION DURATION [None]
  - INTENTIONAL SELF-INJURY [None]
